FAERS Safety Report 8344554-1 (Version None)
Quarter: 2012Q2

REPORT INFORMATION
  Report Type: 
  Country: None (occurrence: None)
  Receive Date: 20120508
  Receipt Date: 20120427
  Transmission Date: 20120825
  Serious: Yes (Hospitalization, Other)
  Sender: FDA-Public Use
  Company Number: DE-ROCHE-1042522

PATIENT
  Sex: Female
  Weight: 53 kg

DRUGS (5)
  1. DOXORUBICIN HCL [Suspect]
     Indication: BREAST CANCER
     Dosage: LAST DOSE PRIOR TO SAE 09 FEB 2012
     Route: 042
     Dates: start: 20111006
  2. HERCEPTIN [Suspect]
     Indication: BREAST CANCER
     Dosage: LAST DOSE PRIOR TO SAE 02 FEB 2012
     Route: 042
     Dates: start: 20111006
  3. PACLITAXEL [Suspect]
     Indication: BREAST CANCER
     Dosage: LAST DOSE PRIOR TO SAE: 09 FEB 2012
     Route: 042
     Dates: start: 20111006
  4. CARBOPLATIN [Suspect]
     Indication: BREAST CANCER
     Dosage: LAST DOSE PRIOR TO SAE 09 FEB 2012
     Route: 042
     Dates: start: 20111006
  5. LAPATINIB [Suspect]
     Indication: BREAST CANCER
     Dosage: LAST DOSE PRIOR TO SAE 31 OCT 2011
     Route: 048
     Dates: start: 20111006

REACTIONS (4)
  - SYNCOPE [None]
  - THROMBOCYTOPENIA [None]
  - NAUSEA [None]
  - WEIGHT DECREASED [None]
